FAERS Safety Report 4312252-7 (Version None)
Quarter: 2004Q1

REPORT INFORMATION
  Report Type: 
  Country: None (occurrence: None)
  Receive Date: 20040302
  Receipt Date: 20031103
  Transmission Date: 20041129
  Serious: No
  Sender: FDA-Public Use
  Company Number: 200327943BWH

PATIENT
  Age: 73 Year
  Sex: Male

DRUGS (9)
  1. LEVITRA [Suspect]
     Indication: ERECTILE DYSFUNCTION
     Dosage: 10 MG PRN ORAL
     Route: 048
     Dates: start: 20031001
  2. ANAPRILIN [Concomitant]
  3. PLAVIX [Concomitant]
  4. NORVASC [Concomitant]
  5. ATENOLOL [Concomitant]
  6. BEXTRA [Concomitant]
  7. ZOCOR [Concomitant]
  8. PARLODEL [Concomitant]
  9. HYTRIN [Concomitant]

REACTIONS (1)
  - ERECTILE DYSFUNCTION [None]
